FAERS Safety Report 26106159 (Version 1)
Quarter: 2025Q4

REPORT INFORMATION
  Report Type: Report from Study
  Country: EG (occurrence: EG)
  Receive Date: 20251201
  Receipt Date: 20251201
  Transmission Date: 20260118
  Serious: Yes (Other)
  Sender: ROCHE
  Company Number: EG-ROCHE-10000441499

PATIENT
  Age: 36 Year
  Sex: Male
  Weight: 105 kg

DRUGS (1)
  1. OCREVUS [Suspect]
     Active Substance: OCRELIZUMAB
     Indication: Multiple sclerosis
     Dosage: NA
     Route: 042

REACTIONS (2)
  - Multiple sclerosis [Recovering/Resolving]
  - Muscular weakness [Recovering/Resolving]
